FAERS Safety Report 17259082 (Version 8)
Quarter: 2020Q1

REPORT INFORMATION
  Report Type: Spontaneous
  Country: DE (occurrence: DE)
  Receive Date: 20200110
  Receipt Date: 20200325
  Transmission Date: 20200409
  Serious: Yes (Life-Threatening, Hospitalization)
  Sender: FDA-Public Use
  Company Number: DE-ANIPHARMA-2019-DE-000183

PATIENT
  Age: 63 Year
  Sex: Female
  Weight: 73 kg

DRUGS (9)
  1. FULVESTRANT. [Suspect]
     Active Substance: FULVESTRANT
     Dosage: 250 MG
     Route: 030
     Dates: start: 20200106, end: 20200106
  2. OXYCODONE [Concomitant]
     Active Substance: OXYCODONE
     Dosage: 10 MG DAILY
     Route: 048
     Dates: start: 20191030
  3. PANTOPRAZOLE [Concomitant]
     Active Substance: PANTOPRAZOLE
     Dosage: 40 MG DAILY
     Route: 048
     Dates: start: 20191016
  4. NOVAMINSULFON [Concomitant]
     Active Substance: METAMIZOLE
     Dosage: 500 MG DAILY
     Route: 048
     Dates: start: 20191016
  5. PIPERACILLIN AND TAZOBACTAM [Suspect]
     Active Substance: PIPERACILLIN SODIUM\TAZOBACTAM SODIUM
     Dosage: 3 DF TID
     Route: 058
     Dates: start: 20191124, end: 20191129
  6. RIBOCICLIB. [Suspect]
     Active Substance: RIBOCICLIB
     Dosage: 600 MG, (SCHEME 21 DAYS INTAKE, 7 DAYS PAUSE)
     Route: 048
     Dates: start: 20191106, end: 20191123
  7. ANASTROZOLE. [Suspect]
     Active Substance: ANASTROZOLE
     Indication: HER-2 POSITIVE BREAST CANCER
     Dosage: 1 MG DAILY
     Route: 048
     Dates: start: 20191106, end: 20191123
  8. MACROGOL (NDA 020541) (NDA 020541) (NDA 020541) (NDA 020541) (NDA 0205 [Concomitant]
     Dosage: 1 DF DAILY
     Route: 048
     Dates: start: 20191023
  9. DEXAMETHASONE. [Concomitant]
     Active Substance: DEXAMETHASONE
     Dosage: 0.5 DF, BID
     Route: 048
     Dates: start: 20191016

REACTIONS (19)
  - Pancytopenia [Unknown]
  - Ascites [Unknown]
  - General physical health deterioration [Recovering/Resolving]
  - Rash [Unknown]
  - Fatigue [Unknown]
  - Acute hepatic failure [Unknown]
  - Nausea [Recovered/Resolved]
  - Retroperitoneal cancer [Unknown]
  - Haemoglobin decreased [Unknown]
  - Thrombocytopenia [Recovered/Resolved]
  - Dysphagia [Recovered/Resolved]
  - Ovarian cancer [Unknown]
  - Pruritus [Recovered/Resolved]
  - Pleural effusion [Unknown]
  - Hypersensitivity [Recovered/Resolved]
  - Hepatic cyst [Unknown]
  - Vomiting [Recovered/Resolved]
  - Diarrhoea [Recovered/Resolved]
  - Pyrexia [Recovered/Resolved]

NARRATIVE: CASE EVENT DATE: 20191104
